FAERS Safety Report 20565065 (Version 1)
Quarter: 2022Q1

REPORT INFORMATION
  Report Type: Report from Study
  Country: US (occurrence: None)
  Receive Date: 20220308
  Receipt Date: 20220308
  Transmission Date: 20220424
  Serious: No
  Sender: FDA-Public Use
  Company Number: US-Spark Therapeutics, Inc.-US-SPK-20-00073

PATIENT
  Age: 15 Year
  Sex: Male

DRUGS (20)
  1. LUXTURNA [Suspect]
     Active Substance: VORETIGENE NEPARVOVEC-RZYL
     Indication: Leber^s congenital amaurosis
     Dates: start: 20181009, end: 20181009
  2. LUXTURNA [Suspect]
     Active Substance: VORETIGENE NEPARVOVEC-RZYL
     Dates: start: 20181016, end: 20181016
  3. LUXTURNA [Suspect]
     Active Substance: VORETIGENE NEPARVOVEC-RZYL
     Indication: Leber^s congenital amaurosis
     Dates: start: 20181009, end: 20181009
  4. LUXTURNA [Suspect]
     Active Substance: VORETIGENE NEPARVOVEC-RZYL
     Dates: start: 20181016, end: 20181016
  5. PREDNISONE [Concomitant]
     Active Substance: PREDNISONE
     Indication: Prophylaxis
     Route: 048
     Dates: start: 20181006, end: 20181019
  6. PREDNISONE [Concomitant]
     Active Substance: PREDNISONE
     Route: 048
     Dates: start: 20181020, end: 20181021
  7. PREDNISONE [Concomitant]
     Active Substance: PREDNISONE
     Route: 048
     Dates: start: 20181022, end: 20181023
  8. PREDNISONE [Concomitant]
     Active Substance: PREDNISONE
     Route: 048
     Dates: start: 20181024, end: 20181025
  9. PREDNISONE [Concomitant]
     Active Substance: PREDNISONE
     Route: 048
     Dates: start: 20181026, end: 20181027
  10. PREDNISONE [Concomitant]
     Active Substance: PREDNISONE
     Route: 048
     Dates: start: 20181029, end: 20181030
  11. ATROPINE [Concomitant]
     Active Substance: ATROPINE
     Indication: Prophylaxis
     Dates: start: 20181010, end: 20181015
  12. ATROPINE [Concomitant]
     Active Substance: ATROPINE
     Dates: start: 20181017, end: 20181022
  13. MAXITROL [Concomitant]
     Active Substance: DEXAMETHASONE\NEOMYCIN SULFATE\POLYMYXIN B SULFATE
     Indication: Prophylaxis
     Dates: start: 20181010, end: 20181017
  14. MAXITROL [Concomitant]
     Active Substance: DEXAMETHASONE\NEOMYCIN SULFATE\POLYMYXIN B SULFATE
     Dates: start: 20181017, end: 20181024
  15. MAXITROL [Concomitant]
     Active Substance: DEXAMETHASONE\NEOMYCIN SULFATE\POLYMYXIN B SULFATE
     Dates: start: 20181024, end: 20181031
  16. MAXITROL [Concomitant]
     Active Substance: DEXAMETHASONE\NEOMYCIN SULFATE\POLYMYXIN B SULFATE
     Dates: start: 20181031, end: 20181107
  17. MAXITROL [Concomitant]
     Active Substance: DEXAMETHASONE\NEOMYCIN SULFATE\POLYMYXIN B SULFATE
     Dates: start: 20181017, end: 20181024
  18. MAXITROL [Concomitant]
     Active Substance: DEXAMETHASONE\NEOMYCIN SULFATE\POLYMYXIN B SULFATE
     Dates: start: 20181024, end: 20181031
  19. MAXITROL [Concomitant]
     Active Substance: DEXAMETHASONE\NEOMYCIN SULFATE\POLYMYXIN B SULFATE
     Dates: start: 20181031, end: 20181107
  20. MAXITROL [Concomitant]
     Active Substance: DEXAMETHASONE\NEOMYCIN SULFATE\POLYMYXIN B SULFATE
     Dates: start: 20181107, end: 20181114

REACTIONS (1)
  - Chorioretinal atrophy [Not Recovered/Not Resolved]

NARRATIVE: CASE EVENT DATE: 20200110
